FAERS Safety Report 9608518 (Version 1)
Quarter: 2013Q4

REPORT INFORMATION
  Report Type: Spontaneous
  Country: US (occurrence: US)
  Receive Date: 20131009
  Receipt Date: 20131009
  Transmission Date: 20140711
  Serious: Yes (Other)
  Sender: FDA-Public Use
  Company Number: US-ASTRAZENECA-2013SE73318

PATIENT
  Age: 77 Year
  Sex: Female

DRUGS (6)
  1. ARIMIDEX [Suspect]
     Indication: BREAST LUMP REMOVAL
     Route: 048
     Dates: start: 2013
  2. AMLODIPINE [Concomitant]
  3. CARVEDILOL [Concomitant]
  4. DIOVAN [Concomitant]
  5. DISOPYRAMIDE [Concomitant]
  6. HCTZ [Concomitant]

REACTIONS (4)
  - Loss of consciousness [Recovered/Resolved]
  - Urinary tract infection [Unknown]
  - Gastrooesophageal reflux disease [Unknown]
  - Hypertension [Unknown]
